FAERS Safety Report 5396047-1 (Version None)
Quarter: 2007Q3

REPORT INFORMATION
  Report Type: 
  Country: None (occurrence: None)
  Receive Date: 20070724
  Receipt Date: 20070601
  Transmission Date: 20080115
  Serious: Yes (Other)
  Sender: FDA-Public Use
  Company Number: FR-PFIZER INC-2007059518

PATIENT
  Age: 60 Year
  Sex: Male

DRUGS (1)
  1. ATARAX [Suspect]
     Indication: POSTOPERATIVE CARE
     Dosage: DAILY DOSE:100MG
     Route: 060

REACTIONS (2)
  - INCORRECT ROUTE OF DRUG ADMINISTRATION [None]
  - STOMATITIS NECROTISING [None]
